FAERS Safety Report 11415293 (Version 1)
Quarter: 2015Q3

REPORT INFORMATION
  Report Type: Spontaneous
  Country: US (occurrence: None)
  Receive Date: 20150824
  Receipt Date: 20150824
  Transmission Date: 20151125
  Serious: No
  Sender: FDA-Public Use
  Company Number: None

PATIENT
  Age: 43 Year
  Sex: Female
  Weight: 56.7 kg

DRUGS (20)
  1. MILK THISTLE [Concomitant]
     Active Substance: MILK THISTLE
  2. ARMOUR THYROID [Concomitant]
     Active Substance: THYROID, PORCINE\THYROID, UNSPECIFIED
  3. TURMERIC/CURCUMIN [Concomitant]
  4. VITAMIN A [Concomitant]
     Active Substance: VITAMIN A
  5. VITAMIN K2 [Concomitant]
     Active Substance: MENAQUINONE 6
  6. VITAMIN D3 [Concomitant]
     Active Substance: CHOLECALCIFEROL
  7. NIACIN. [Concomitant]
     Active Substance: NIACIN
  8. ZOMIG [Concomitant]
     Active Substance: ZOLMITRIPTAN
  9. MEGA-DHA FISH OIL [Concomitant]
  10. MAGNESIUM [Concomitant]
     Active Substance: MAGNESIUM
  11. ADDERALL XR [Concomitant]
     Active Substance: AMPHETAMINE ASPARTATE\AMPHETAMINE SULFATE\DEXTROAMPHETAMINE SACCHARATE\DEXTROAMPHETAMINE SULFATE
  12. ESTRADIOL. [Concomitant]
     Active Substance: ESTRADIOL
  13. KYOLIC GARLIC [Concomitant]
     Active Substance: DIETARY SUPPLEMENT
  14. DIM [Concomitant]
  15. VITAMIN B COMPLEX [Concomitant]
     Active Substance: CYANOCOBALAMIN\DEXPANTHENOL\NIACINAMIDE\PYRIDOXINE HYDROCHLORIDE\RIBOFLAVIN 5^-PHOSPHATE SODIUM\THIAMINE HYDROCHLORIDE\VITAMIN B COMPLEX
  16. PROGESTERONE SR [Concomitant]
  17. MAXALT [Concomitant]
     Active Substance: RIZATRIPTAN BENZOATE
  18. DEXTROAMPHETAMINE-AMPHETAMINE ER [Suspect]
     Active Substance: AMPHETAMINE ASPARTATE\AMPHETAMINE SULFATE\DEXTROAMPHETAMINE SACCHARATE\DEXTROAMPHETAMINE SULFATE
     Indication: NARCOLEPSY
     Route: 048
     Dates: start: 20150801, end: 20150821
  19. XYREM [Concomitant]
     Active Substance: SODIUM OXYBATE
  20. TESTOSTERONE. [Concomitant]
     Active Substance: TESTOSTERONE

REACTIONS (3)
  - Product substitution issue [None]
  - Yawning [None]
  - Drug effect decreased [None]

NARRATIVE: CASE EVENT DATE: 20150717
